FAERS Safety Report 6124990-4 (Version None)
Quarter: 2009Q1

REPORT INFORMATION
  Report Type: 
  Country: None (occurrence: None)
  Receive Date: 20090319
  Receipt Date: 20090309
  Transmission Date: 20090719
  Serious: Yes (Life-Threatening, Hospitalization)
  Sender: FDA-Public Use
  Company Number: GB-BRISTOL-MYERS SQUIBB COMPANY-14532378

PATIENT
  Age: 62 Year
  Sex: Female

DRUGS (10)
  1. IXABEPILONE [Suspect]
     Indication: BREAST CANCER
     Dosage: APPROX. 20 ML INFUSED
     Route: 042
     Dates: start: 20090304, end: 20090304
  2. CYCLOPHOSPHAMIDE [Suspect]
     Indication: BREAST CANCER
     Dosage: INITIATED ON 09DEC08
     Route: 042
     Dates: start: 20090211, end: 20090211
  3. DOXORUBICIN HCL [Suspect]
     Indication: BREAST CANCER
     Dosage: INITIATED ON 09DEC08
     Route: 042
     Dates: start: 20090211, end: 20090211
  4. METOCLOPRAMIDE [Suspect]
     Indication: PREMEDICATION
     Dosage: GIVEN AGAIN ON 13-MAR-2009
     Dates: start: 20090304
  5. PAROXETINE HCL [Concomitant]
     Dates: start: 20070101
  6. ATENOLOL [Concomitant]
     Dates: start: 20081201
  7. CHLORPHENIRAMINE MALEATE [Concomitant]
     Indication: PREMEDICATION
     Route: 048
     Dates: start: 20090304
  8. RANITIDINE [Concomitant]
     Indication: PREMEDICATION
     Route: 048
     Dates: start: 20090304
  9. DEXAMETHASONE [Concomitant]
     Indication: PROPHYLAXIS OF NAUSEA AND VOMITING
     Route: 042
     Dates: start: 20090304
  10. ONDANSETRON [Concomitant]
     Indication: PROPHYLAXIS OF NAUSEA AND VOMITING
     Route: 042
     Dates: start: 20090304

REACTIONS (2)
  - ANAPHYLACTIC REACTION [None]
  - PULMONARY EMBOLISM [None]
